FAERS Safety Report 5653208-1 (Version None)
Quarter: 2008Q1

REPORT INFORMATION
  Report Type: 
  Country: None (occurrence: None)
  Receive Date: 20080306
  Receipt Date: 20080222
  Transmission Date: 20080703
  Serious: Yes (Hospitalization)
  Sender: FDA-Public Use
  Company Number: JP-ELI_LILLY_AND_COMPANY-JP200708006244

PATIENT
  Sex: Male
  Weight: 70 kg

DRUGS (8)
  1. PEMETREXED [Suspect]
     Indication: PLEURAL MESOTHELIOMA MALIGNANT
     Dosage: 850 MG, OTHER
     Route: 042
     Dates: start: 20070814, end: 20070814
  2. CISPLATIN [Suspect]
     Indication: PLEURAL MESOTHELIOMA MALIGNANT
     Dosage: 100 MG, OTHER
     Route: 042
     Dates: start: 20070814, end: 20070814
  3. PANVITAN [Concomitant]
     Dosage: 0.5 MG, DAILY (1/D)
     Route: 048
     Dates: start: 20070807, end: 20070907
  4. CYANOCOBALAMIN [Concomitant]
     Dosage: 1 MG, OTHER
     Route: 030
     Dates: start: 20070807
  5. PROMAC [Concomitant]
     Indication: GASTRITIS
     Dosage: 1 G, DAILY (1/D)
     Route: 048
  6. DEPAS [Concomitant]
     Indication: ANXIETY DISORDER
     Dosage: 1.5 MG, DAILY (1/D)
     Route: 048
  7. NAUZELIN [Concomitant]
     Indication: GASTRITIS
     Dosage: 30 MG, DAILY (1/D)
     Route: 048
  8. OMEPRAL [Concomitant]
     Indication: GASTRITIS
     Dosage: 20 MG, DAILY (1/D)
     Route: 048

REACTIONS (3)
  - DYSPNOEA [None]
  - PYREXIA [None]
  - SHOCK [None]
